FAERS Safety Report 10518498 (Version 3)
Quarter: 2014Q4

REPORT INFORMATION
  Report Type: Spontaneous
  Country: US (occurrence: US)
  Receive Date: 20141015
  Receipt Date: 20141222
  Transmission Date: 20150528
  Serious: Yes (Hospitalization)
  Sender: FDA-Public Use
  Company Number: US-PFIZER INC-2014282838

PATIENT
  Sex: Female

DRUGS (4)
  1. AUGMENTIN [Suspect]
     Active Substance: AMOXICILLIN\CLAVULANATE POTASSIUM
     Indication: SINUSITIS
     Dosage: UNK
     Dates: start: 2002, end: 2002
  2. CELEBREX [Suspect]
     Active Substance: CELECOXIB
     Indication: RHEUMATOID ARTHRITIS
     Dosage: UNK, 1X/DAY
     Dates: start: 1999, end: 1999
  3. RELAFEN [Suspect]
     Active Substance: NABUMETONE
     Indication: ARTHRITIS
     Dosage: UNK, 1X/DAY
     Dates: start: 1999
  4. RELAFEN [Suspect]
     Active Substance: NABUMETONE
     Indication: PAIN

REACTIONS (1)
  - Drug hypersensitivity [Recovered/Resolved]
